FAERS Safety Report 5572392-1 (Version None)
Quarter: 2007Q4

REPORT INFORMATION
  Report Type: 
  Country: None (occurrence: None)
  Receive Date: 20071219
  Receipt Date: 20071207
  Transmission Date: 20080405
  Serious: Yes (Other)
  Sender: FDA-Public Use
  Company Number: 2007AL005305

PATIENT
  Sex: Male

DRUGS (11)
  1. IBUPROFEN ORAL SUSPENSION UPS, 100 MG/5 ML (RX) (ALPHARMA)(IBUPROFEN O [Suspect]
  2. CODEINE SUL TAB [Concomitant]
  3. IBUPROFEN AND PSEUDOEPHEDRINE HCL [Concomitant]
  4. PAROXETINE [Concomitant]
  5. LOPERAMINE [Concomitant]
  6. FLUOXETINE [Concomitant]
  7. LITHIUM [Concomitant]
  8. METHYLENEDIOXYMETHAMPHETAMINE [Concomitant]
  9. COCAINE [Concomitant]
  10. ECSTASY [Concomitant]
  11. ALCOHOL [Concomitant]

REACTIONS (13)
  - ALCOHOLISM [None]
  - CONSTIPATION [None]
  - DEPRESSION [None]
  - DRUG ABUSER [None]
  - DRY MOUTH [None]
  - PARTNER STRESS [None]
  - PHYSICAL ASSAULT [None]
  - SEXUAL DYSFUNCTION [None]
  - SOCIAL PHOBIA [None]
  - SUICIDAL IDEATION [None]
  - SUICIDE ATTEMPT [None]
  - TOBACCO USER [None]
  - VISION BLURRED [None]
